FAERS Safety Report 4834980-7 (Version None)
Quarter: 2005Q4

REPORT INFORMATION
  Report Type: 
  Country: None (occurrence: None)
  Receive Date: 20051114
  Receipt Date: 20051031
  Transmission Date: 20060501
  Serious: Yes (Hospitalization)
  Sender: FDA-Public Use
  Company Number: USA0507102924

PATIENT
  Age: 78 Year
  Sex: Male

DRUGS (12)
  1. GEMZAR [Suspect]
     Indication: METASTASES TO BONE
     Dosage: 1000 MG/M2
     Dates: start: 20050623, end: 20050630
  2. GEMZAR [Suspect]
     Indication: METASTASES TO SPLEEN
     Dosage: 1000 MG/M2
     Dates: start: 20050623, end: 20050630
  3. GEMZAR [Suspect]
     Indication: NON-SMALL CELL LUNG CANCER STAGE IV
     Dosage: 1000 MG/M2
     Dates: start: 20050623, end: 20050630
  4. CARBOPLATIN [Concomitant]
  5. LISINOPRIL [Concomitant]
  6. DIGITEX (DIGOXIN) [Concomitant]
  7. FLOMAX [Concomitant]
  8. OXYGEN [Concomitant]
  9. ASPIRIN [Concomitant]
  10. ALBUTEROL [Concomitant]
  11. MORPHINE [Concomitant]
  12. PERCOCET [Concomitant]

REACTIONS (8)
  - ACUTE FEBRILE NEUTROPHILIC DERMATOSIS [None]
  - ERYTHEMA [None]
  - ESCHAR [None]
  - HAEMORRHAGE [None]
  - RASH [None]
  - RASH PUSTULAR [None]
  - SKIN ODOUR ABNORMAL [None]
  - STAPHYLOCOCCAL INFECTION [None]
